FAERS Safety Report 7336629-0 (Version None)
Quarter: 2011Q1

REPORT INFORMATION
  Report Type: 
  Country: None (occurrence: None)
  Receive Date: 20110308
  Receipt Date: 20110225
  Transmission Date: 20110831
  Serious: Yes (Other)
  Sender: FDA-Public Use
  Company Number: FR-AMGEN-FRASP2010007390

PATIENT
  Age: 38 Year
  Sex: Male
  Weight: 80 kg

DRUGS (5)
  1. PANTOPRAZOLE [Concomitant]
     Dosage: 20 MG, 1X/DAY
     Route: 048
     Dates: start: 20101028
  2. ACETAMINOPHEN [Concomitant]
     Indication: PAIN
     Dosage: 1 G, 4X/DAY
     Route: 048
     Dates: start: 20101028
  3. NEXIUM [Concomitant]
     Dosage: 20 MG, 1X/DAY
     Route: 048
     Dates: start: 20101028
  4. ENBREL [Suspect]
     Indication: RHEUMATOID ARTHRITIS
     Dosage: UNK
     Dates: start: 20101116, end: 20101101
  5. KETOPROFEN [Concomitant]
     Indication: PAIN
     Dosage: 150 MG, 2X/DAY
     Route: 048
     Dates: start: 20101028

REACTIONS (6)
  - FATIGUE [None]
  - COUGH [None]
  - DYSPNOEA [None]
  - MYALGIA [None]
  - MALAISE [None]
  - PYREXIA [None]
